FAERS Safety Report 4375837-8 (Version None)
Quarter: 2004Q2

REPORT INFORMATION
  Report Type: 
  Country: None (occurrence: None)
  Receive Date: 20040607
  Receipt Date: 20040525
  Transmission Date: 20050107
  Serious: Yes (Hospitalization)
  Sender: FDA-Public Use
  Company Number: 2004IC000163

PATIENT
  Age: 61 Year
  Sex: Female

DRUGS (8)
  1. FLUOROURACIL [Suspect]
     Indication: METASTASES TO LIVER
     Dosage: 800 MG, INTRAVENOUS DRIP; 800 MG, INTRAVENOUS DRIP
     Route: 041
  2. ISOVORIN [Concomitant]
     Indication: METASTASES TO LIVER
     Dosage: 300 MG, INTRAVENOUS DRIP; 300 MG, INTRAVENOUS DRIP
     Route: 041
  3. RENIVACE [Concomitant]
  4. AMLODIPINE [Concomitant]
  5. AMARYL [Concomitant]
  6. MELBIN [Concomitant]
  7. MYSLEE [Concomitant]
  8. KYTRIL [Concomitant]

REACTIONS (5)
  - BLOOD PRESSURE DECREASED [None]
  - ESCHERICHIA INFECTION [None]
  - PYREXIA [None]
  - SYNCOPE [None]
  - URINARY TRACT INFECTION [None]
